FAERS Safety Report 7554858-8 (Version None)
Quarter: 2011Q2

REPORT INFORMATION
  Report Type: 
  Country: None (occurrence: None)
  Receive Date: 20110617
  Receipt Date: 20110607
  Transmission Date: 20111010
  Serious: Yes (Hospitalization)
  Sender: FDA-Public Use
  Company Number: CA-AMGEN-CANSP2011029420

PATIENT
  Age: 74 Year
  Sex: Female

DRUGS (3)
  1. METHOTREXATE [Concomitant]
     Dosage: UNK UNK, QWK
     Dates: end: 20100101
  2. ENBREL [Suspect]
     Indication: RHEUMATOID ARTHRITIS
     Dosage: 50 MG, QWK
     Route: 058
     Dates: start: 20020101, end: 20110201
  3. LEVOTHYROXINE SODIUM [Concomitant]
     Dosage: 0.1 MG, UNK

REACTIONS (1)
  - COLON CANCER [None]
